FAERS Safety Report 23880638 (Version 1)
Quarter: 2024Q2

REPORT INFORMATION
  Report Type: Spontaneous
  Country: US (occurrence: US)
  Receive Date: 20240521
  Receipt Date: 20240521
  Transmission Date: 20240715
  Serious: No
  Sender: FDA-Public Use
  Company Number: US-PFIZER INC-202400135738

PATIENT
  Age: 71 Year
  Sex: Male
  Weight: 86.18 kg

DRUGS (13)
  1. INLYTA [Suspect]
     Active Substance: AXITINIB
     Indication: Neoplasm malignant
     Dosage: UNK, 2X/DAY
  2. INLYTA [Suspect]
     Active Substance: AXITINIB
     Indication: Immunochemotherapy
     Dosage: UNK, 1X/DAY
  3. PEMBROLIZUMAB [Suspect]
     Active Substance: PEMBROLIZUMAB
     Indication: Neoplasm malignant
     Dosage: UNK, EVERY 3 WEEKS, INFUSION
  4. ASPIRIN [Concomitant]
     Active Substance: ASPIRIN
     Indication: Hypertension
     Dosage: 80 MG, 1X/DAY
  5. CIALIS [Concomitant]
     Active Substance: TADALAFIL
     Indication: Hypertension
     Dosage: 5 MG, 2X/DAY
  6. LIPITOR [Concomitant]
     Active Substance: ATORVASTATIN CALCIUM
     Indication: Hypertension
     Dosage: 40 MG, 1X/DAY
  7. DILTIAZEM [Concomitant]
     Active Substance: DILTIAZEM
     Indication: Hypertension
     Dosage: 240 MG, 1X/DAY
  8. DOXAZOSIN [Concomitant]
     Active Substance: DOXAZOSIN MESYLATE
     Indication: Hypertension
     Dosage: 0.5 DF, 2X/DAY (8 MG; HALF TWICE A DAY)
  9. FAMOTIDINE [Concomitant]
     Active Substance: FAMOTIDINE
     Indication: Hypertension
     Dosage: 40 MG, 2X/DAY
  10. HYDRALAZINE [Concomitant]
     Active Substance: HYDRALAZINE HYDROCHLORIDE
     Indication: Hypertension
     Dosage: 50 MG, 2X/DAY
  11. LEVOTHYROXINE [Concomitant]
     Active Substance: LEVOTHYROXINE\LEVOTHYROXINE SODIUM
     Indication: Hypertension
     Dosage: UNK, 1X/DAY
  12. NEBIVOLOL [Concomitant]
     Active Substance: NEBIVOLOL
     Indication: Hypertension
     Dosage: 5 MG, 2X/DAY
  13. OLMESARTAN [Concomitant]
     Active Substance: OLMESARTAN
     Indication: Hypertension
     Dosage: 40 MG

REACTIONS (2)
  - Hypertension [Not Recovered/Not Resolved]
  - Intentional product misuse [Unknown]
